FAERS Safety Report 8790982 (Version 1)
Quarter: 2012Q4

REPORT INFORMATION
  Report Type: Spontaneous
  Country: US (occurrence: None)
  Receive Date: 20120907
  Receipt Date: 20120907
  Transmission Date: 20130627
  Serious: Yes (Other)
  Sender: FDA-Public Use
  Company Number: 1404192

PATIENT
  Sex: Male

DRUGS (6)
  1. VINCRISTINE SULFATE [Suspect]
     Indication: EWING^S SARCOMA
  2. ETOPOSIDE [Suspect]
     Indication: EWING^S SARCOMA
  3. DOXORUBICIN [Suspect]
     Indication: EWING^S SARCOMA
  4. CYCLOPHOSPHAMIDE [Suspect]
     Indication: EWING^S SARCOMA
  5. IFOSFAMIDE [Suspect]
     Indication: EWING^S SARCOMA
  6. THERAPEUTIC RADIOPHARMACEUTICALS [Suspect]
     Indication: EWING^S SARCOMA

REACTIONS (3)
  - Recall phenomenon [None]
  - Myositis [None]
  - Acute myeloid leukaemia [None]
